FAERS Safety Report 9009483 (Version 1)
Quarter: 2013Q1

REPORT INFORMATION
  Report Type: Spontaneous
  Country: JP (occurrence: JP)
  Receive Date: 20130110
  Receipt Date: 20130110
  Transmission Date: 20140127
  Serious: Yes (Death, Other)
  Sender: FDA-Public Use
  Company Number: PHHY2013JP002017

PATIENT
  Age: 58 Year
  Sex: Female

DRUGS (7)
  1. CICLOSPORIN [Suspect]
     Indication: STEM CELL TRANSPLANT
  2. CICLOSPORIN [Suspect]
     Indication: PROPHYLAXIS AGAINST GRAFT VERSUS HOST DISEASE
  3. METHOTREXATE [Suspect]
     Indication: T-CELL TYPE ACUTE LEUKAEMIA
     Dosage: 5 MG/KG, QD DAYS 1, 3, AND 6
  4. METHOTREXATE [Suspect]
     Indication: STEM CELL TRANSPLANT
  5. FLUDARABINE [Concomitant]
     Dosage: 25 MG/KG, QD X5 DAYS
  6. MELPHALAN [Concomitant]
     Dosage: 40 MG/KG, QD X2 DAYS
  7. IRRADIATION [Concomitant]
     Dosage: 2 GY X 6

REACTIONS (5)
  - Adult T-cell lymphoma/leukaemia [Fatal]
  - Malignant neoplasm progression [Fatal]
  - Adult T-cell lymphoma/leukaemia recurrent [Unknown]
  - Chronic graft versus host disease in skin [Unknown]
  - Chronic graft versus host disease in intestine [Unknown]
